FAERS Safety Report 10664313 (Version 1)
Quarter: 2014Q4

REPORT INFORMATION
  Report Type: Spontaneous
  Country: US (occurrence: None)
  Receive Date: 20141218
  Receipt Date: 20141218
  Transmission Date: 20150529
  Serious: Yes (Hospitalization)
  Sender: FDA-Public Use
  Company Number: None

PATIENT
  Age: 51 Year
  Sex: Male
  Weight: 89.8 kg

DRUGS (6)
  1. DAPAGLIFLOZIN 10 MG [Suspect]
     Active Substance: DAPAGLIFLOZIN
     Indication: TYPE 2 DIABETES MELLITUS
     Route: 048
     Dates: end: 20141112
  2. ASPIRIN. [Concomitant]
     Active Substance: ASPIRIN
  3. DOCUSTAE [Concomitant]
  4. SENNA [Concomitant]
     Active Substance: SENNA LEAF\SENNOSIDES\SENNOSIDES A AND B
  5. PANTOPRAZOLE [Concomitant]
     Active Substance: PANTOPRAZOLE SODIUM
  6. BUPROPION XL [Concomitant]
     Active Substance: BUPROPION

REACTIONS (3)
  - Urine ketone body present [None]
  - Glucose urine present [None]
  - Metabolic acidosis [None]

NARRATIVE: CASE EVENT DATE: 20141112
